FAERS Safety Report 7914940-X (Version None)
Quarter: 2011Q4

REPORT INFORMATION
  Report Type: 
  Country: None (occurrence: None)
  Receive Date: 20111115
  Receipt Date: 20111107
  Transmission Date: 20120403
  Serious: Yes (Hospitalization)
  Sender: FDA-Public Use
  Company Number: ES-ROCHE-1010113

PATIENT
  Sex: Male

DRUGS (1)
  1. INTERFERON ALFA [Suspect]
     Indication: METASTATIC MALIGNANT MELANOMA

REACTIONS (1)
  - CHOLECYSTITIS [None]
